FAERS Safety Report 6295885-0 (Version None)
Quarter: 2009Q3

REPORT INFORMATION
  Report Type: 
  Country: None (occurrence: None)
  Receive Date: 20090804
  Receipt Date: 20090723
  Transmission Date: 20100115
  Serious: Yes (Hospitalization, Other)
  Sender: FDA-Public Use
  Company Number: PHHY2009SE30574

PATIENT
  Sex: Male

DRUGS (10)
  1. RITALIN [Suspect]
     Indication: ATTENTION DEFICIT/HYPERACTIVITY DISORDER
     Dosage: 120 MG MORNING, 120 MG NOON, 40 MG EVENING, AND 20 MG EXTRA
     Dates: start: 20081223
  2. RITALIN [Suspect]
     Dosage: 340 MG DAILY
  3. LAMOTRIGIN [Concomitant]
  4. LYRICA [Concomitant]
  5. MELATONIN [Concomitant]
  6. CREON [Concomitant]
  7. ACETAMINOPHEN [Concomitant]
  8. XERODENT [Concomitant]
  9. ACETYLCYSTEINE [Concomitant]
  10. ALCOHOL [Concomitant]

REACTIONS (5)
  - DELIRIUM [None]
  - HALLUCINATIONS, MIXED [None]
  - OVERDOSE [None]
  - PSYCHOTIC DISORDER [None]
  - SLEEP DISORDER [None]
